FAERS Safety Report 6132156-7 (Version None)
Quarter: 2009Q1

REPORT INFORMATION
  Report Type: 
  Country: None (occurrence: None)
  Receive Date: 20090325
  Receipt Date: 20090323
  Transmission Date: 20090719
  Serious: Yes (Other)
  Sender: FDA-Public Use
  Company Number: B0561751A

PATIENT
  Age: 17 Year
  Sex: Male

DRUGS (4)
  1. RELENZA [Suspect]
     Indication: INFLUENZA
     Dosage: 5MG TWICE PER DAY
     Route: 055
     Dates: start: 20090222, end: 20090222
  2. CALONAL [Concomitant]
     Dosage: 800MG PER DAY
     Route: 048
     Dates: start: 20090222
  3. ANHIBA [Concomitant]
     Route: 054
     Dates: start: 20090222, end: 20090222
  4. UNKNOWN DRUG [Concomitant]
     Dosage: 500ML PER DAY
     Route: 042
     Dates: start: 20090222, end: 20090222

REACTIONS (4)
  - ABNORMAL BEHAVIOUR [None]
  - AGGRESSION [None]
  - DELIRIUM [None]
  - MALAISE [None]
